FAERS Safety Report 20699099 (Version 2)
Quarter: 2022Q2

REPORT INFORMATION
  Report Type: Spontaneous
  Country: SE (occurrence: SE)
  Receive Date: 20220412
  Receipt Date: 20220414
  Transmission Date: 20220721
  Serious: Yes (Death, Hospitalization, Other)
  Sender: FDA-Public Use
  Company Number: SE-CELLTRION INC.-2022SE004521

PATIENT

DRUGS (2)
  1. INFLIXIMAB [Suspect]
     Active Substance: INFLIXIMAB
     Indication: Neurosarcoidosis
     Dosage: UNKNOWN, MORE THAN SEVEN YEARS
     Route: 065
  2. METHOTREXATE [Suspect]
     Active Substance: METHOTREXATE
     Indication: Neurosarcoidosis
     Dosage: UNKNOWN, MORE THAN SEVEN YEARS
     Route: 065

REACTIONS (6)
  - Epstein-Barr virus associated lymphoproliferative disorder [Fatal]
  - Hodgkin^s disease [Fatal]
  - Neurosarcoidosis [Fatal]
  - Pneumonia bacterial [Fatal]
  - COVID-19 [Fatal]
  - Off label use [Fatal]
